FAERS Safety Report 9510150 (Version 1)
Quarter: 2013Q3

REPORT INFORMATION
  Report Type: Spontaneous
  Country: US (occurrence: US)
  Receive Date: 20130909
  Receipt Date: 20130909
  Transmission Date: 20140515
  Serious: Yes (Hospitalization)
  Sender: FDA-Public Use
  Company Number: US-BRISTOL-MYERS SQUIBB COMPANY-18737676

PATIENT
  Age: 15 Year
  Sex: Male

DRUGS (5)
  1. ABILIFY TABS 10 MG [Suspect]
     Indication: AUTISM
  2. ABILIFY TABS 10 MG [Suspect]
     Indication: ASPERGER^S DISORDER
  3. INVEGA [Suspect]
  4. DEPAKOTE [Suspect]
  5. ZOLOFT [Concomitant]

REACTIONS (1)
  - Aggression [Unknown]
